FAERS Safety Report 14931527 (Version 1)
Quarter: 2018Q2

REPORT INFORMATION
  Report Type: Spontaneous
  Country: FR (occurrence: FR)
  Receive Date: 20180524
  Receipt Date: 20180524
  Transmission Date: 20180711
  Serious: Yes (Hospitalization)
  Sender: FDA-Public Use
  Company Number: FR-TEVA-2018-FR-897200

PATIENT
  Age: 58 Year
  Sex: Male
  Weight: 70 kg

DRUGS (8)
  1. SOLU-MEDROL [Concomitant]
     Active Substance: METHYLPREDNISOLONE SODIUM SUCCINATE
     Indication: T-CELL LYMPHOMA
     Route: 042
     Dates: start: 20160726, end: 20160728
  2. CORTANCYL [Concomitant]
     Active Substance: PREDNISONE
     Indication: T-CELL LYMPHOMA
     Route: 048
     Dates: start: 20160729, end: 20160730
  3. VINCRISTINE HOSPIRA 2 MG/2 ML, SOLUTION INJECTABLE [Suspect]
     Active Substance: VINCRISTINE SULFATE
     Indication: T-CELL LYMPHOMA
     Route: 042
     Dates: start: 20160726, end: 20160726
  4. METHOTREXATE. [Suspect]
     Active Substance: METHOTREXATE
     Indication: T-CELL LYMPHOMA
     Route: 024
     Dates: start: 20160726, end: 20160726
  5. ZOPHREN [Concomitant]
     Active Substance: ONDANSETRON
     Indication: T-CELL LYMPHOMA
     Route: 042
     Dates: start: 20160726, end: 20160728
  6. ETOPOSIDE. [Suspect]
     Active Substance: ETOPOSIDE
     Indication: T-CELL LYMPHOMA
     Route: 042
     Dates: start: 20160726, end: 20160728
  7. DOXORUBICINE TEVA 200 MG/100 ML, SOLUTION INJECTABLE [Suspect]
     Active Substance: DOXORUBICIN HYDROCHLORIDE
     Indication: T-CELL LYMPHOMA
     Route: 042
     Dates: start: 20160726, end: 20160726
  8. ENDOXAN 1000 MG, LYOPHILISATE FOR SOLUTION FOR INJECTION [Suspect]
     Active Substance: CYCLOPHOSPHAMIDE
     Indication: T-CELL LYMPHOMA
     Route: 042
     Dates: start: 20160726, end: 20160726

REACTIONS (2)
  - Febrile bone marrow aplasia [Not Recovered/Not Resolved]
  - Pyrexia [Not Recovered/Not Resolved]

NARRATIVE: CASE EVENT DATE: 20160803
